FAERS Safety Report 4951821-8 (Version None)
Quarter: 2006Q1

REPORT INFORMATION
  Report Type: 
  Country: None (occurrence: None)
  Receive Date: 20060323
  Receipt Date: 20050823
  Transmission Date: 20060701
  Serious: Yes (Hospitalization, Other)
  Sender: FDA-Public Use
  Company Number: US-MERCK-0508USA03931

PATIENT
  Age: 63 Year
  Sex: Female
  Weight: 59 kg

DRUGS (11)
  1. VIOXX [Suspect]
     Indication: ARTHRITIS
     Route: 048
     Dates: start: 20020118, end: 20031201
  2. VIOXX [Suspect]
     Route: 048
     Dates: start: 20031202
  3. VIOXX [Suspect]
     Route: 048
     Dates: end: 20040930
  4. TYLENOL (CAPLET) [Concomitant]
     Indication: PAIN
     Route: 065
  5. ATENOLOL [Concomitant]
     Indication: MIGRAINE
     Route: 065
  6. FIORINAL [Concomitant]
     Indication: HEADACHE
     Route: 065
  7. LOMOTIL [Concomitant]
     Indication: DIARRHOEA
     Route: 065
  8. CLARINEX [Concomitant]
     Indication: HYPERSENSITIVITY
     Route: 065
  9. ESTROGENS (UNSPECIFIED) [Concomitant]
     Indication: HORMONE REPLACEMENT THERAPY
     Route: 065
     Dates: start: 19820101, end: 20020701
  10. ALEVE [Concomitant]
     Route: 065
  11. IMITREX [Concomitant]
     Indication: MIGRAINE
     Route: 065

REACTIONS (9)
  - ANXIETY [None]
  - ARTHROPATHY [None]
  - BLOOD CHOLESTEROL INCREASED [None]
  - CEREBROVASCULAR ACCIDENT [None]
  - DEPRESSION [None]
  - HYPERTENSION [None]
  - PAIN IN EXTREMITY [None]
  - STOMACH DISCOMFORT [None]
  - VISION BLURRED [None]
